FAERS Safety Report 15801804 (Version 4)
Quarter: 2019Q1

REPORT INFORMATION
  Report Type: Spontaneous
  Country: BE (occurrence: BE)
  Receive Date: 20190109
  Receipt Date: 20190326
  Transmission Date: 20190417
  Serious: Yes (Death, Other)
  Sender: FDA-Public Use
  Company Number: BE-BRISTOL-MYERS SQUIBB COMPANY-BMS-2019-001276

PATIENT
  Sex: Male
  Weight: 100 kg

DRUGS (1)
  1. NIVOLUMAB [Suspect]
     Active Substance: NIVOLUMAB
     Indication: BIPHASIC MESOTHELIOMA
     Dosage: 3 MG/KG, UNK
     Route: 065
     Dates: start: 20181206

REACTIONS (2)
  - Product use in unapproved indication [Unknown]
  - Pneumonia [Fatal]
